FAERS Safety Report 22270011 (Version 1)
Quarter: 2023Q2

REPORT INFORMATION
  Report Type: Spontaneous
  Country: HU (occurrence: HU)
  Receive Date: 20230501
  Receipt Date: 20230501
  Transmission Date: 20230722
  Serious: Yes (Hospitalization, Other)
  Sender: FDA-Public Use
  Company Number: HU-002147023-NVSC2023HU092319

PATIENT

DRUGS (4)
  1. RUXOLITINIB [Suspect]
     Active Substance: RUXOLITINIB
     Indication: Myelofibrosis
     Dosage: 20 MG, BID (2X20MG)
     Route: 065
     Dates: start: 20161220
  2. RUXOLITINIB [Suspect]
     Active Substance: RUXOLITINIB
     Dosage: 5 MG, BID (2X5MG)
     Route: 065
     Dates: start: 20170217
  3. RUXOLITINIB [Suspect]
     Active Substance: RUXOLITINIB
     Dosage: 5 MG, QD (1X5 MG)
     Route: 065
     Dates: start: 2021
  4. DOXORUBICIN [Suspect]
     Active Substance: DOXORUBICIN
     Indication: Plasma cell myeloma
     Dosage: UNK
     Route: 065
     Dates: start: 2021, end: 202110

REACTIONS (11)
  - Amyloidosis [Unknown]
  - Kidney small [Unknown]
  - Renal disorder [Unknown]
  - COVID-19 [Unknown]
  - Spinal cord herniation [Not Recovered/Not Resolved]
  - Plasma cell myeloma [Unknown]
  - Inappropriate schedule of product administration [Unknown]
  - Renal failure [Unknown]
  - Spleen disorder [Unknown]
  - Respiratory symptom [Unknown]
  - Cytopenia [Unknown]

NARRATIVE: CASE EVENT DATE: 20170818
